FAERS Safety Report 7176312-8 (Version None)
Quarter: 2010Q4

REPORT INFORMATION
  Report Type: 
  Country: None (occurrence: None)
  Receive Date: 20101220
  Receipt Date: 20101216
  Transmission Date: 20110411
  Serious: No
  Sender: FDA-Public Use
  Company Number: US-PFIZER INC-2010174055

PATIENT
  Sex: Female
  Weight: 63.492 kg

DRUGS (3)
  1. PRISTIQ [Suspect]
     Indication: DEPRESSION
     Dosage: 100 MG, 1X/DAY
     Route: 048
     Dates: start: 20100101
  2. ALPRAZOLAM [Concomitant]
     Indication: DEPRESSION
     Dosage: 1 MG, 4X/DAY
  3. ALPRAZOLAM [Concomitant]
     Indication: ANXIETY

REACTIONS (5)
  - DIARRHOEA [None]
  - DIZZINESS [None]
  - DRUG INEFFECTIVE [None]
  - FATIGUE [None]
  - HEADACHE [None]
